FAERS Safety Report 12305872 (Version 2)
Quarter: 2016Q2

REPORT INFORMATION
  Report Type: Report from Study
  Country: NZ (occurrence: NZ)
  Receive Date: 20160426
  Receipt Date: 20160620
  Transmission Date: 20160815
  Serious: Yes (Other)
  Sender: FDA-Public Use
  Company Number: NZ-JNJFOC-20160318999

PATIENT
  Sex: Male

DRUGS (1)
  1. ZYTIGA [Suspect]
     Active Substance: ABIRATERONE ACETATE
     Indication: PROSTATE CANCER METASTATIC
     Route: 048
     Dates: start: 20160101

REACTIONS (6)
  - Off label use [Unknown]
  - Abdominal pain [Not Recovered/Not Resolved]
  - Drug prescribing error [Unknown]
  - Urethral haemorrhage [Not Recovered/Not Resolved]
  - Renal pain [Not Recovered/Not Resolved]
  - Penile pain [Not Recovered/Not Resolved]
